FAERS Safety Report 7288284-6 (Version None)
Quarter: 2011Q1

REPORT INFORMATION
  Report Type: 
  Country: None (occurrence: None)
  Receive Date: 20110207
  Receipt Date: 20110207
  Transmission Date: 20110831
  Serious: Yes (Hospitalization)
  Sender: FDA-Public Use
  Company Number: None

PATIENT
  Sex: Female
  Weight: 104.3273 kg

DRUGS (3)
  1. DECADRON [Concomitant]
  2. DACOGEN [Suspect]
     Indication: CHRONIC MYELOID LEUKAEMIA
     Dosage: 42 MG DAYS 1-5 Q 28 DAYS IV
     Route: 042
     Dates: start: 20101227, end: 20101231
  3. KYTRIL [Concomitant]

REACTIONS (6)
  - OEDEMA PERIPHERAL [None]
  - FATIGUE [None]
  - ASTHENIA [None]
  - MOBILITY DECREASED [None]
  - DYSPNOEA [None]
  - ABDOMINAL DISTENSION [None]
